FAERS Safety Report 8550725-1 (Version None)
Quarter: 2012Q3

REPORT INFORMATION
  Report Type: 
  Country: None (occurrence: None)
  Receive Date: 20120730
  Receipt Date: 20120725
  Transmission Date: 20120928
  Serious: Yes (Hospitalization)
  Sender: FDA-Public Use
  Company Number: DE-GLAXOSMITHKLINE-D0075988A

PATIENT
  Sex: Female
  Weight: 75 kg

DRUGS (5)
  1. FEMARA [Suspect]
     Dosage: 2.5MG UNKNOWN
     Route: 065
  2. IBANDRONATE SODIUM [Suspect]
     Route: 065
  3. LAPATINIB [Suspect]
     Indication: BREAST CANCER
     Dosage: 1000MG PER DAY
     Route: 048
     Dates: start: 20120123, end: 20120619
  4. HERCEPTIN [Suspect]
     Route: 065
  5. BISOPROLOL FUMARATE [Suspect]
     Dosage: 2.5MG TWICE PER DAY
     Route: 065

REACTIONS (10)
  - CONFUSIONAL STATE [None]
  - MEMORY IMPAIRMENT [None]
  - MYOCARDIAL INFARCTION [None]
  - TREMOR [None]
  - SPEECH DISORDER [None]
  - GAIT DISTURBANCE [None]
  - COORDINATION ABNORMAL [None]
  - NERVOUS SYSTEM DISORDER [None]
  - MUSCLE SPASMS [None]
  - DIZZINESS [None]
